FAERS Safety Report 18232531 (Version 3)
Quarter: 2022Q2

REPORT INFORMATION
  Report Type: Spontaneous
  Country: US (occurrence: US)
  Receive Date: 20200904
  Receipt Date: 20220505
  Transmission Date: 20220721
  Serious: No
  Sender: FDA-Public Use
  Company Number: US-PFIZER INC-2020341531

PATIENT
  Age: 82 Year
  Sex: Female

DRUGS (1)
  1. XELJANZ XR [Suspect]
     Active Substance: TOFACITINIB CITRATE
     Dosage: 11 MG

REACTIONS (6)
  - Eye pruritus [Unknown]
  - Dry eye [Unknown]
  - Nasal disorder [Unknown]
  - Sinus disorder [Unknown]
  - Seasonal allergy [Unknown]
  - Hypersensitivity [Unknown]
